FAERS Safety Report 13375727 (Version 1)
Quarter: 2017Q1

REPORT INFORMATION
  Report Type: Spontaneous
  Country: GB (occurrence: GB)
  Receive Date: 20170328
  Receipt Date: 20170328
  Transmission Date: 20170429
  Serious: Yes (Other)
  Sender: FDA-Public Use
  Company Number: GB-ACCORD-049460

PATIENT
  Age: 69 Year
  Sex: Male

DRUGS (18)
  1. GABAPENTIN. [Concomitant]
     Active Substance: GABAPENTIN
     Indication: PAIN
     Dates: start: 20170201
  2. CLOPIDOGREL [Concomitant]
     Active Substance: CLOPIDOGREL BISULFATE
     Indication: CARDIAC DISORDER
     Dates: start: 20170227
  3. ACIDEX [Concomitant]
     Active Substance: CALCIUM CARBONATE\SODIUM ALGINATE\SODIUM BICARBONATE
     Dosage: 2X5ML SPOON
     Dates: start: 20170210
  4. ADCAL [Concomitant]
     Active Substance: CALCIUM CARBONATE
     Dates: start: 20170301
  5. AMOXICILLIN. [Concomitant]
     Active Substance: AMOXICILLIN
     Dates: start: 20170214, end: 20170221
  6. INDAPAMIDE/INDAPAMIDE HEMIHYDRATE [Concomitant]
     Indication: HYPERTENSION
     Dosage: EACH MORNING
     Dates: start: 20170227
  7. ZOPICLONE [Concomitant]
     Active Substance: ZOPICLONE
     Dosage: 1-2 AT NIGHT
     Dates: start: 20170227
  8. PARACETAMOL [Concomitant]
     Active Substance: ACETAMINOPHEN
     Dosage: 1X5ML SPOON
     Dates: start: 20170227
  9. CODEINE [Concomitant]
     Active Substance: CODEINE
     Dosage: TAKE ONE TO TWO TABLETS UPTO FOUR TIMES DAILY
     Dates: start: 20170306
  10. IRON [Concomitant]
     Active Substance: IRON
     Indication: ANAEMIA
     Dates: start: 20170227
  11. NOVORAPID [Concomitant]
     Active Substance: INSULIN ASPART
     Dosage: USE AS DIRECTED
     Dates: start: 20170227
  12. LATANOPROST. [Concomitant]
     Active Substance: LATANOPROST
     Indication: GLAUCOMA
     Dosage: EACH EYE AT NIGHT
     Route: 047
     Dates: start: 20170227
  13. TRAMADOL/TRAMADOL HYDROCHLORIDE [Suspect]
     Active Substance: TRAMADOL HYDROCHLORIDE
     Indication: PRODUCT USED FOR UNKNOWN INDICATION
     Route: 048
     Dates: start: 20170306
  14. WHITE SOFT PARAFFIN [Concomitant]
     Dates: start: 20170202, end: 20170302
  15. LEVEMIR [Concomitant]
     Active Substance: INSULIN DETEMIR
     Dosage: USE AS DIRECTED
     Dates: start: 20170227
  16. GLUCOSE/GLUCOSE MONOHYDRATE/GLUCOSE OXIDASE [Concomitant]
     Indication: HYPOGLYCAEMIA
     Dates: start: 20170210
  17. RAMIPRIL. [Concomitant]
     Active Substance: RAMIPRIL
     Dates: start: 20170227
  18. METFORMIN [Concomitant]
     Active Substance: METFORMIN HYDROCHLORIDE
     Dosage: IN THE MORNING FOR ONE WEEK
     Dates: start: 20170227

REACTIONS (1)
  - Hypoglycaemia [Recovering/Resolving]

NARRATIVE: CASE EVENT DATE: 20170306
